FAERS Safety Report 13651012 (Version 31)
Quarter: 2024Q1

REPORT INFORMATION
  Report Type: Spontaneous
  Country: US (occurrence: US)
  Receive Date: 20170614
  Receipt Date: 20240124
  Transmission Date: 20240409
  Serious: Yes (Hospitalization, Other)
  Sender: FDA-Public Use
  Company Number: US-INCYTE CORPORATION-2017IN004526

PATIENT

DRUGS (41)
  1. JAKAFI [Suspect]
     Active Substance: RUXOLITINIB
     Indication: Myelofibrosis
     Dosage: 15 MILLIGRAM, BID
     Route: 048
     Dates: start: 20170310
  2. JAKAFI [Suspect]
     Active Substance: RUXOLITINIB
     Indication: Polycythaemia vera
     Dosage: 15 MILLIGRAM, BID
     Route: 048
     Dates: start: 201703
  3. JAKAFI [Suspect]
     Active Substance: RUXOLITINIB
     Dosage: 15 MILLIGRAM, BID
     Route: 048
     Dates: start: 20170414
  4. JAKAFI [Suspect]
     Active Substance: RUXOLITINIB
     Dosage: 15 MG, BID
     Route: 065
  5. JAKAFI [Suspect]
     Active Substance: RUXOLITINIB
     Dosage: 15 MG, BID
     Route: 048
  6. JAKAFI [Suspect]
     Active Substance: RUXOLITINIB
     Dosage: 15 MG, BID
     Route: 048
  7. JAKAFI [Suspect]
     Active Substance: RUXOLITINIB
     Dosage: 15 MILLIGRAM, BID
     Route: 048
     Dates: start: 20170414
  8. JAKAFI [Suspect]
     Active Substance: RUXOLITINIB
     Dosage: 15 MG, BID
     Route: 048
     Dates: start: 20200310
  9. JAKAFI [Suspect]
     Active Substance: RUXOLITINIB
     Dosage: 15 MG, BID
     Route: 048
     Dates: start: 20170414
  10. JAKAFI [Suspect]
     Active Substance: RUXOLITINIB
     Dosage: 15 MILLIGRAM, BID
     Route: 048
     Dates: start: 20170414
  11. JAKAFI [Suspect]
     Active Substance: RUXOLITINIB
     Dosage: 15 MILLIGRAM, BID
     Route: 048
  12. JAKAFI [Suspect]
     Active Substance: RUXOLITINIB
     Dosage: 5 MILLIGRAM, BID
     Route: 048
     Dates: start: 201802
  13. JAKAFI [Suspect]
     Active Substance: RUXOLITINIB
     Dosage: 15 MILLIGRAM, BID
     Route: 048
     Dates: start: 2018
  14. JAKAFI [Suspect]
     Active Substance: RUXOLITINIB
     Dosage: 15 MG, BID
     Route: 048
     Dates: start: 20200310
  15. JAKAFI [Suspect]
     Active Substance: RUXOLITINIB
     Dosage: 15 MILLIGRAM, BID
     Route: 048
  16. JAKAFI [Suspect]
     Active Substance: RUXOLITINIB
     Dosage: 5 MILLIGRAM, BID
     Route: 048
     Dates: start: 20211028
  17. WARFARIN [Suspect]
     Active Substance: WARFARIN
     Indication: Product used for unknown indication
     Dosage: UNK
     Route: 065
  18. PEPCID [Suspect]
     Active Substance: FAMOTIDINE
     Indication: Product used for unknown indication
     Dosage: PRN
     Route: 065
  19. LOVENOX [Suspect]
     Active Substance: ENOXAPARIN SODIUM
     Indication: Product used for unknown indication
     Route: 065
  20. BENICAR [Concomitant]
     Active Substance: OLMESARTAN MEDOXOMIL
     Indication: Product used for unknown indication
     Dosage: UNK
     Route: 065
  21. METOPROLOL SUCCINATE [Concomitant]
     Active Substance: METOPROLOL SUCCINATE
     Indication: Product used for unknown indication
     Dosage: UNK
     Route: 065
  22. ECOTRIN [Concomitant]
     Active Substance: ASPIRIN
     Indication: Product used for unknown indication
     Dosage: UNK
     Route: 065
  23. XANAX [Concomitant]
     Active Substance: ALPRAZOLAM
     Indication: Product used for unknown indication
     Dosage: UNK
     Route: 065
  24. OMEPRAZOLE [Concomitant]
     Active Substance: OMEPRAZOLE
     Indication: Product used for unknown indication
     Dosage: UNK
     Route: 065
  25. ASPIRIN [Concomitant]
     Active Substance: ASPIRIN
     Indication: Product used for unknown indication
     Dosage: UNK
     Route: 065
  26. FLONASE                            /00972202/ [Concomitant]
     Indication: Product used for unknown indication
     Dosage: UNK
     Route: 045
  27. FLONASE                            /00972202/ [Concomitant]
     Dosage: QD
     Route: 065
  28. PANTOPRAZOLE [Concomitant]
     Active Substance: PANTOPRAZOLE
     Indication: Product used for unknown indication
     Dosage: UNK
     Route: 065
  29. ERYTHROMYCIN [Concomitant]
     Active Substance: ERYTHROMYCIN
     Indication: Product used for unknown indication
     Dosage: UNK
     Route: 065
  30. LASIX [Concomitant]
     Active Substance: FUROSEMIDE
     Indication: Product used for unknown indication
     Route: 065
  31. ASTELIN                            /00884002/ [Concomitant]
     Indication: Product used for unknown indication
     Dosage: UNK UNK, PRN
     Route: 045
  32. METOPROLOL [Concomitant]
     Active Substance: METOPROLOL
     Indication: Product used for unknown indication
     Route: 065
  33. GABAPENTIN [Concomitant]
     Active Substance: GABAPENTIN
     Indication: Product used for unknown indication
     Route: 065
  34. OLMESARTAN [Concomitant]
     Active Substance: OLMESARTAN
     Indication: Product used for unknown indication
     Route: 065
  35. HYDROCODONE/ACETAMINOPHEN          /00607101/ [Concomitant]
     Indication: Product used for unknown indication
     Dosage: PRN
     Route: 065
  36. FUROSEMIDE [Concomitant]
     Active Substance: FUROSEMIDE
     Indication: Product used for unknown indication
     Route: 065
  37. VITAMIN D NOS [Concomitant]
     Active Substance: VITAMIN D NOS
     Indication: Product used for unknown indication
     Dosage: ONCE MONTHLY
     Route: 065
  38. ARIXTRA [Concomitant]
     Active Substance: FONDAPARINUX SODIUM
     Indication: Product used for unknown indication
     Route: 065
  39. DILAUDID [Concomitant]
     Active Substance: HYDROMORPHONE HYDROCHLORIDE
     Indication: Product used for unknown indication
     Route: 065
  40. COVID-19 VACCINE [Concomitant]
     Indication: Product used for unknown indication
     Dosage: UNK
     Route: 065
     Dates: start: 20201230
  41. COVID-19 VACCINE [Concomitant]
     Dosage: UNK
     Route: 065
     Dates: start: 20210127

REACTIONS (104)
  - Transient ischaemic attack [Unknown]
  - Pneumonia viral [Recovering/Resolving]
  - Hip fracture [Recovering/Resolving]
  - Malaise [Unknown]
  - Cough [Not Recovered/Not Resolved]
  - Secretion discharge [Unknown]
  - Multiple fractures [Unknown]
  - Haemorrhage [Unknown]
  - Femur fracture [Not Recovered/Not Resolved]
  - Thrombosis [Unknown]
  - Intestinal ischaemia [Unknown]
  - Arterial stenosis [Unknown]
  - Haemoglobin decreased [Recovering/Resolving]
  - Platelet count decreased [Not Recovered/Not Resolved]
  - Thrombocytopenia [Not Recovered/Not Resolved]
  - Dysarthria [Unknown]
  - International normalised ratio decreased [Unknown]
  - Blood lactate dehydrogenase increased [Not Recovered/Not Resolved]
  - Pain in extremity [Recovering/Resolving]
  - Therapeutic response unexpected [Unknown]
  - Irritable bowel syndrome [Unknown]
  - Skin burning sensation [Unknown]
  - Stress fracture [Recovering/Resolving]
  - Speech disorder [Unknown]
  - Stomatitis [Unknown]
  - Cheilitis [Unknown]
  - Paraesthesia [Unknown]
  - Night sweats [Recovered/Resolved]
  - Parathyroid disorder [Unknown]
  - Impaired healing [Unknown]
  - Blood calcium increased [Unknown]
  - Skin discolouration [Unknown]
  - Depression [Unknown]
  - Oral discomfort [Unknown]
  - Weight decreased [Recovering/Resolving]
  - Hepatic enzyme increased [Recovering/Resolving]
  - Hypophagia [Recovering/Resolving]
  - Lung disorder [Recovering/Resolving]
  - Tooth disorder [Unknown]
  - Tooth fracture [Unknown]
  - Haematocrit increased [Unknown]
  - Blood calcium decreased [Unknown]
  - Blood pressure fluctuation [Unknown]
  - International normalised ratio abnormal [Unknown]
  - Mesenteric venous occlusion [Unknown]
  - Endocrine disorder [Unknown]
  - Abdominal discomfort [Unknown]
  - Cholelithiasis [Unknown]
  - Tremor [Unknown]
  - Mastication disorder [Unknown]
  - Pyrexia [Not Recovered/Not Resolved]
  - Head injury [Unknown]
  - Fall [Recovering/Resolving]
  - Back injury [Unknown]
  - Gait disturbance [Recovering/Resolving]
  - Blood bilirubin increased [Unknown]
  - Limb injury [Unknown]
  - Joint swelling [Recovering/Resolving]
  - Arthritis [Not Recovered/Not Resolved]
  - Bone marrow disorder [Not Recovered/Not Resolved]
  - Bone disorder [Unknown]
  - Blood disorder [Unknown]
  - Feeling abnormal [Unknown]
  - Vitamin D decreased [Unknown]
  - Pollakiuria [Unknown]
  - Swelling [Unknown]
  - Cold sweat [Unknown]
  - Dyspepsia [Unknown]
  - Fluid retention [Unknown]
  - Eating disorder [Unknown]
  - Gastrointestinal disorder [Unknown]
  - Viral infection [Unknown]
  - Vitamin B12 decreased [Unknown]
  - White blood cells urine positive [Unknown]
  - Anxiety [Unknown]
  - Platelet count increased [Unknown]
  - Energy increased [Unknown]
  - Vascular calcification [Unknown]
  - Exposure to SARS-CoV-2 [Not Recovered/Not Resolved]
  - Pain [Unknown]
  - Blood folate decreased [Unknown]
  - Antibody test negative [Unknown]
  - Renal function test abnormal [Not Recovered/Not Resolved]
  - Abdominal pain upper [Unknown]
  - Incorrect dose administered [Unknown]
  - Red blood cell count decreased [Unknown]
  - Cystitis [Recovering/Resolving]
  - Fatigue [Not Recovered/Not Resolved]
  - Arthralgia [Recovering/Resolving]
  - Blood cholesterol increased [Unknown]
  - Haematocrit decreased [Unknown]
  - Contusion [Unknown]
  - Peripheral swelling [Unknown]
  - Blood pressure increased [Unknown]
  - Anaemia [Not Recovered/Not Resolved]
  - Nausea [Unknown]
  - Abdominal pain [Unknown]
  - Diarrhoea [Unknown]
  - Increased tendency to bruise [Unknown]
  - Alanine aminotransferase increased [Unknown]
  - Balance disorder [Not Recovered/Not Resolved]
  - Urinary tract infection [Unknown]
  - Weight increased [Unknown]
  - Purpura [Unknown]

NARRATIVE: CASE EVENT DATE: 20170101
